FAERS Safety Report 6392561-0 (Version None)
Quarter: 2009Q4

REPORT INFORMATION
  Report Type: 
  Country: None (occurrence: None)
  Receive Date: 20091007
  Receipt Date: 20090929
  Transmission Date: 20100525
  Serious: Yes (Other)
  Sender: FDA-Public Use
  Company Number: US-JNJCH-2009025986

PATIENT
  Age: 60 Year
  Sex: Female

DRUGS (1)
  1. COOL MINT LISTERINE POCKETMIST [Suspect]
     Indication: SMOKING CESSATION THERAPY
     Dosage: TEXT:UNSPECIFIED
     Route: 048

REACTIONS (2)
  - DEPENDENCE [None]
  - THERAPEUTIC RESPONSE UNEXPECTED [None]
